FAERS Safety Report 5228720-X (Version None)
Quarter: 2007Q1

REPORT INFORMATION
  Report Type: 
  Country: None (occurrence: None)
  Receive Date: 20070129
  Receipt Date: 20070115
  Transmission Date: 20070707
  Serious: Yes (Hospitalization)
  Sender: FDA-Public Use
  Company Number: 200610408BBE

PATIENT
  Age: 12 Year
  Sex: Male
  Weight: 65.318 kg

DRUGS (2)
  1. HYPERRAB-TALECRIS (RABIES IMMUNE GLOBULIN (HUMAN)) [Suspect]
     Indication: ANIMAL BITE
     Dosage: IM
     Route: 030
     Dates: start: 20061123, end: 20061127
  2. IMOVAX RABIES (RABIES VACCINE) [Suspect]
     Indication: ANIMAL BITE
     Dosage: 12.5 IU; IM
     Route: 030
     Dates: start: 20061123, end: 20061123

REACTIONS (12)
  - ANOREXIA [None]
  - CHILLS [None]
  - DELIRIUM [None]
  - DISORIENTATION [None]
  - DIZZINESS [None]
  - FEELING COLD [None]
  - HEADACHE [None]
  - HYPERHIDROSIS [None]
  - INCORRECT DOSE ADMINISTERED [None]
  - PYREXIA [None]
  - THIRST DECREASED [None]
  - TREMOR [None]
